FAERS Safety Report 19297601 (Version 2)
Quarter: 2021Q2

REPORT INFORMATION
  Report Type: Spontaneous
  Country: HR (occurrence: HR)
  Receive Date: 20210525
  Receipt Date: 20210531
  Transmission Date: 20210717
  Serious: Yes (Life-Threatening)
  Sender: FDA-Public Use
  Company Number: HR-CELLTRION INC.-2021HR006877

PATIENT

DRUGS (2)
  1. RITUXIMAB (UNKNOWN) [Suspect]
     Active Substance: RITUXIMAB
     Indication: DIFFUSE LARGE B-CELL LYMPHOMA
     Dosage: DOSE ADJUSTED
  2. EPOCH [CYCLOPHOSPHAMIDE;DOXORUBICIN HYDROCHLORIDE;ETOPOSIDE;PREDNISONE [Suspect]
     Active Substance: CYCLOPHOSPHAMIDE\DOXORUBICIN\ETOPOSIDE\PREDNISONE\VINCRISTINE
     Indication: DIFFUSE LARGE B-CELL LYMPHOMA
     Dosage: DOSE ADJUSTED

REACTIONS (1)
  - Haematotoxicity [Unknown]
